FAERS Safety Report 14702743 (Version 1)
Quarter: 2018Q2

REPORT INFORMATION
  Report Type: Spontaneous
  Country: IT (occurrence: IT)
  Receive Date: 20180402
  Receipt Date: 20180402
  Transmission Date: 20180711
  Serious: Yes (Other)
  Sender: FDA-Public Use
  Company Number: IT-BAXTER-2018BAX010038

PATIENT
  Age: 45 Year
  Sex: Female

DRUGS (3)
  1. ENDOXAN BAXTER [Suspect]
     Active Substance: CYCLOPHOSPHAMIDE
     Indication: BREAST CANCER
     Route: 041
  2. CORTISONE [Concomitant]
     Active Substance: CORTISONE\HYDROCORTISONE
     Indication: PREMEDICATION
     Route: 065
  3. TAXOTERE [Suspect]
     Active Substance: DOCETAXEL
     Indication: BREAST CANCER
     Route: 041
     Dates: start: 201802

REACTIONS (7)
  - Epistaxis [Unknown]
  - Alopecia [Unknown]
  - Onychomycosis [Unknown]
  - Stomatitis [Unknown]
  - Fatigue [Unknown]
  - Dizziness [Unknown]
  - Neutropenia [Not Recovered/Not Resolved]

NARRATIVE: CASE EVENT DATE: 201802
